FAERS Safety Report 8716790 (Version 3)
Quarter: 2013Q1

REPORT INFORMATION
  Report Type: Spontaneous
  Country: US (occurrence: None)
  Receive Date: 20120725
  Receipt Date: 20121226
  Transmission Date: 20140127
  Serious: Yes (Hospitalization, Other)
  Sender: FDA-Public Use
  Company Number: 2012-3321

PATIENT
  Age: 38 Year
  Sex: Female

DRUGS (2)
  1. SOMATULINE DEPOT [Suspect]
     Indication: ACROMEGALY
     Dosage: 90 MG (90 MG, 1 IN 28 D),SUBCUTANEOUS
     Route: 058
     Dates: start: 201007, end: 20111211
  2. LEVOXYL [Concomitant]

REACTIONS (18)
  - Uterine cyst [None]
  - Uterine leiomyoma [None]
  - Amenorrhoea [None]
  - Insulin-like growth factor increased [None]
  - White blood cell count increased [None]
  - Blood potassium decreased [None]
  - Blood iron decreased [None]
  - Gastritis [None]
  - Ovarian cyst [None]
  - Diarrhoea [None]
  - Abasia [None]
  - Aphasia [None]
  - Fall [None]
  - Alanine aminotransferase increased [None]
  - Blood alkaline phosphatase increased [None]
  - Aspartate aminotransferase increased [None]
  - Bilirubin conjugated increased [None]
  - Infection [None]
